FAERS Safety Report 6516388-1 (Version None)
Quarter: 2009Q4

REPORT INFORMATION
  Report Type: 
  Country: None (occurrence: None)
  Receive Date: 20091223
  Receipt Date: 20091215
  Transmission Date: 20100525
  Serious: Yes (Other)
  Sender: FDA-Public Use
  Company Number: B0548949A

PATIENT
  Age: 55 Year
  Sex: Male

DRUGS (4)
  1. LAMOTRIGINE [Suspect]
     Indication: DEPRESSION
     Dosage: 50MG PER DAY
     Route: 065
     Dates: start: 20080101, end: 20080101
  2. LAMOTRIGINE [Suspect]
     Dosage: 25MG PER DAY
     Route: 065
     Dates: start: 20080712, end: 20080801
  3. DEPAKOTE [Suspect]
     Indication: MANIA
     Dosage: 1000MG PER DAY
     Route: 065
     Dates: start: 20080601, end: 20080802
  4. CLOPIXOL [Concomitant]
     Indication: DRUG USE FOR UNKNOWN INDICATION

REACTIONS (2)
  - DRUG INTERACTION [None]
  - STEVENS-JOHNSON SYNDROME [None]
